FAERS Safety Report 4989848-2 (Version None)
Quarter: 2006Q2

REPORT INFORMATION
  Report Type: 
  Country: None (occurrence: None)
  Receive Date: 20060428
  Receipt Date: 20060418
  Transmission Date: 20061013
  Serious: Yes (Hospitalization, Other)
  Sender: FDA-Public Use
  Company Number: RENA-11735

PATIENT
  Age: 57 Year
  Sex: Male

DRUGS (9)
  1. RENAGEL [Suspect]
     Indication: HYPERPHOSPHATAEMIA
     Dates: start: 20030101
  2. RENAGEL [Suspect]
     Indication: HYPERPHOSPHATAEMIA
     Dates: start: 20010701, end: 20030101
  3. ALFACALCIDOL [Concomitant]
  4. ALUCAPS [Concomitant]
  5. ASPIRIN [Concomitant]
  6. FOLIC ACID [Concomitant]
  7. KETOVITE [Concomitant]
  8. IRBESARTAN [Concomitant]
  9. ERYTHROPOIETIN BETA [Concomitant]

REACTIONS (12)
  - ACUTE RESPIRATORY DISTRESS SYNDROME [None]
  - AORTIC CALCIFICATION [None]
  - ATRIAL FIBRILLATION [None]
  - BLOOD PARATHYROID HORMONE INCREASED [None]
  - BLOOD POTASSIUM INCREASED [None]
  - EJECTION FRACTION DECREASED [None]
  - HAEMODIALYSIS [None]
  - HYPERCALCAEMIA [None]
  - HYPOTENSION [None]
  - PULMONARY CALCIFICATION [None]
  - PULMONARY OEDEMA [None]
  - VASCULAR CALCIFICATION [None]
